FAERS Safety Report 8112680-8 (Version None)
Quarter: 2012Q1

REPORT INFORMATION
  Report Type: 
  Country: None (occurrence: None)
  Receive Date: 20120203
  Receipt Date: 20120120
  Transmission Date: 20120608
  Serious: Yes (Other)
  Sender: FDA-Public Use
  Company Number: CA-ROCHE-1024664

PATIENT
  Sex: Female

DRUGS (2)
  1. LUCENTIS [Suspect]
     Indication: PRODUCT USED FOR UNKNOWN INDICATION
     Route: 050
     Dates: start: 20110801
  2. LUCENTIS [Suspect]
     Route: 050
     Dates: start: 20111108

REACTIONS (3)
  - VISUAL ACUITY REDUCED [None]
  - MALAISE [None]
  - DRUG INEFFECTIVE [None]
